FAERS Safety Report 6435835-7 (Version None)
Quarter: 2009Q4

REPORT INFORMATION
  Report Type: 
  Country: None (occurrence: None)
  Receive Date: 20091110
  Receipt Date: 20091110
  Transmission Date: 20100525
  Serious: Yes (Life-Threatening, Hospitalization)
  Sender: FDA-Public Use
  Company Number: None

PATIENT
  Age: 28 Year
  Sex: Female
  Weight: 68.2 kg

DRUGS (4)
  1. YAZ [Suspect]
     Indication: CONTRACEPTION
     Dates: start: 20081201, end: 20091101
  2. SYNTHROID [Concomitant]
  3. DAILY MULTIVITAMIN [Concomitant]
  4. ADVIL [Concomitant]

REACTIONS (1)
  - DEEP VEIN THROMBOSIS [None]
